FAERS Safety Report 11698393 (Version 1)
Quarter: 2015Q4

REPORT INFORMATION
  Report Type: Spontaneous
  Country: US (occurrence: US)
  Receive Date: 20151104
  Receipt Date: 20151104
  Transmission Date: 20160304
  Serious: No
  Sender: FDA-Public Use
  Company Number: US-APOPHARMA USA, INC.-2012AP001013

PATIENT
  Age: 89 Year
  Sex: Male
  Weight: 70.8 kg

DRUGS (5)
  1. LANOXIN [Concomitant]
     Active Substance: DIGOXIN
     Route: 048
  2. FERRIPROX [Suspect]
     Active Substance: DEFERIPRONE
     Indication: MYELODYSPLASTIC SYNDROME
  3. COREG [Concomitant]
     Active Substance: CARVEDILOL
     Route: 048
  4. FERRIPROX [Suspect]
     Active Substance: DEFERIPRONE
     Indication: IRON OVERLOAD
     Route: 048
     Dates: start: 20120321, end: 20120331
  5. CELEBREX [Concomitant]
     Active Substance: CELECOXIB
     Route: 048

REACTIONS (3)
  - Vomiting [Recovered/Resolved]
  - Back pain [Recovered/Resolved]
  - Chills [Recovered/Resolved]

NARRATIVE: CASE EVENT DATE: 20120322
